FAERS Safety Report 23173048 (Version 1)
Quarter: 2023Q4

REPORT INFORMATION
  Report Type: Spontaneous
  Country: US (occurrence: US)
  Receive Date: 20231110
  Receipt Date: 20231110
  Transmission Date: 20240109
  Serious: Yes (Life-Threatening, Other)
  Sender: FDA-Public Use
  Company Number: US-MALLINCKRODT-MNK202305566

PATIENT
  Age: 9 Month

DRUGS (1)
  1. NITRIC OXIDE [Suspect]
     Active Substance: NITRIC OXIDE
     Indication: Congenital pulmonary airway malformation
     Dosage: 20 PPM
     Route: 055
     Dates: start: 20231102, end: 20231102

REACTIONS (3)
  - Cardiac arrest [Unknown]
  - Catheter site haemorrhage [Unknown]
  - Product use in unapproved indication [Unknown]

NARRATIVE: CASE EVENT DATE: 20231103
